FAERS Safety Report 9241301 (Version 1)
Quarter: 2013Q2

REPORT INFORMATION
  Report Type: Report from Study
  Country: JP (occurrence: JP)
  Receive Date: 20130419
  Receipt Date: 20130419
  Transmission Date: 20140414
  Serious: Yes (Other)
  Sender: FDA-Public Use
  Company Number: JP-PFIZER INC-2002138929JP

PATIENT
  Age: 67 Year
  Sex: Male

DRUGS (1)
  1. CAMPTOSAR [Suspect]
     Dosage: UNK

REACTIONS (1)
  - Pneumonitis [Unknown]
